FAERS Safety Report 15061786 (Version 1)
Quarter: 2018Q2

REPORT INFORMATION
  Report Type: Spontaneous
  Country: US (occurrence: US)
  Receive Date: 20180605
  Receipt Date: 20180605
  Transmission Date: 20180711
  Serious: No
  Sender: FDA-Public Use
  Company Number: None

PATIENT
  Age: 56 Year
  Sex: Female
  Weight: 113.4 kg

DRUGS (1)
  1. MODAFINIL 200MG [Suspect]
     Active Substance: MODAFINIL
     Indication: HYPERSOMNIA
     Route: 048
     Dates: start: 20180419, end: 20180519

REACTIONS (1)
  - Drug ineffective [None]

NARRATIVE: CASE EVENT DATE: 20180605
